FAERS Safety Report 6295428-1 (Version None)
Quarter: 2009Q3

REPORT INFORMATION
  Report Type: 
  Country: None (occurrence: None)
  Receive Date: 20090803
  Receipt Date: 20090330
  Transmission Date: 20100115
  Serious: Yes (Other)
  Sender: FDA-Public Use
  Company Number: PHHY2009FR11840

PATIENT
  Age: 60 Year
  Sex: Male

DRUGS (2)
  1. CERTICAN [Suspect]
     Indication: LIVER TRANSPLANT
     Dosage: 3.2 G/DAY
  2. INSULIN [Concomitant]

REACTIONS (3)
  - MULTIPLE MYELOMA [None]
  - PROTEINURIA [None]
  - STEM CELL TRANSPLANT [None]
